FAERS Safety Report 24236279 (Version 1)
Quarter: 2024Q3

REPORT INFORMATION
  Report Type: Report from Study
  Country: CA (occurrence: CA)
  Receive Date: 20240822
  Receipt Date: 20240822
  Transmission Date: 20241017
  Serious: Yes (Other)
  Sender: ABBVIE
  Company Number: CA-ABBVIE-5885709

PATIENT
  Sex: Male

DRUGS (1)
  1. RINVOQ [Suspect]
     Active Substance: UPADACITINIB
     Indication: Ankylosing spondylitis
     Dosage: FORM STRENGTH: 15 MG
     Route: 048
     Dates: start: 20221004

REACTIONS (9)
  - Deafness [Unknown]
  - Nightmare [Unknown]
  - Pancytopenia [Unknown]
  - Anaemia of chronic disease [Unknown]
  - Haemorrhoids [Unknown]
  - Immune thrombocytopenia [Unknown]
  - Intellectual disability [Unknown]
  - Synovitis [Unknown]
  - Ear infection [Unknown]
